FAERS Safety Report 11226970 (Version 4)
Quarter: 2015Q3

REPORT INFORMATION
  Report Type: Report from Study
  Country: US (occurrence: US)
  Receive Date: 20150630
  Receipt Date: 20150902
  Transmission Date: 20151125
  Serious: No
  Sender: FDA-Public Use
  Company Number: US-AMGEN-USASL2015062594

PATIENT
  Age: 46 Year
  Sex: Female

DRUGS (1)
  1. ENBREL [Suspect]
     Active Substance: ETANERCEPT
     Indication: RHEUMATOID ARTHRITIS
     Dosage: 50 MG, EVERY 10 DAYS
     Route: 065
     Dates: start: 20150427, end: 2015

REACTIONS (15)
  - Intentional product misuse [Not Recovered/Not Resolved]
  - Dyspnoea [Unknown]
  - Pain [Not Recovered/Not Resolved]
  - Red blood cell sedimentation rate abnormal [Unknown]
  - Adverse event [Unknown]
  - C-reactive protein increased [Unknown]
  - Fatigue [Not Recovered/Not Resolved]
  - Blood uric acid increased [Unknown]
  - Gout [Unknown]
  - Blood uric acid decreased [Unknown]
  - Arthropathy [Not Recovered/Not Resolved]
  - Rash [Unknown]
  - Condition aggravated [Unknown]
  - Decreased appetite [Not Recovered/Not Resolved]
  - Hypersensitivity [Unknown]

NARRATIVE: CASE EVENT DATE: 2015
